FAERS Safety Report 19026062 (Version 1)
Quarter: 2021Q1

REPORT INFORMATION
  Report Type: Spontaneous
  Country: US (occurrence: US)
  Receive Date: 20210318
  Receipt Date: 20210318
  Transmission Date: 20210420
  Serious: No
  Sender: FDA-Public Use
  Company Number: US-SA-2021SA079719

PATIENT
  Age: 74 Year
  Sex: Female

DRUGS (1)
  1. LOVENOX [Suspect]
     Active Substance: ENOXAPARIN SODIUM
     Indication: HIP FRACTURE
     Dosage: 0.4 ML
     Dates: start: 20210301

REACTIONS (4)
  - Injection site haemorrhage [Unknown]
  - Injection site pain [Unknown]
  - Injection site bruising [Unknown]
  - Skin mass [Unknown]

NARRATIVE: CASE EVENT DATE: 20210305
